FAERS Safety Report 6906648-4 (Version None)
Quarter: 2010Q3

REPORT INFORMATION
  Report Type: 
  Country: None (occurrence: None)
  Receive Date: 20100804
  Receipt Date: 20100723
  Transmission Date: 20110219
  Serious: Yes (Other)
  Sender: FDA-Public Use
  Company Number: US-PFIZER INC-2010071954

PATIENT
  Sex: Female
  Weight: 90.703 kg

DRUGS (8)
  1. CHANTIX [Suspect]
     Indication: SMOKING CESSATION THERAPY
     Dosage: 0.5 MG, 1X/DAY
     Route: 048
  2. BUTALBITAL [Suspect]
  3. NEXIUM [Concomitant]
     Dosage: 40 MG, 1X/DAY
  4. LEXAPRO [Concomitant]
     Dosage: 10 MG, 1X/DAY
  5. LYRICA [Concomitant]
     Dosage: 75 MG, 3X/DAY
  6. LORAZEPAM [Concomitant]
     Dosage: 4 MG, 3X/DAY
  7. ADVAIR DISKUS 100/50 [Concomitant]
     Dosage: UNK, AS NEEDED
  8. ARMODAFINIL [Concomitant]
     Dosage: 150 MG, 1X/DAY

REACTIONS (9)
  - DRY EYE [None]
  - DYSPHONIA [None]
  - EMOTIONAL DISTRESS [None]
  - FEELING ABNORMAL [None]
  - INITIAL INSOMNIA [None]
  - LIMB DISCOMFORT [None]
  - MEIGE'S SYNDROME [None]
  - OROMANDIBULAR DYSTONIA [None]
  - PHOTOPHOBIA [None]
